FAERS Safety Report 9422996 (Version 1)
Quarter: 2013Q3

REPORT INFORMATION
  Report Type: Spontaneous
  Country: US (occurrence: US)
  Receive Date: 20130726
  Receipt Date: 20130726
  Transmission Date: 20140515
  Serious: Yes (Hospitalization)
  Sender: FDA-Public Use
  Company Number: US-GLAXOSMITHKLINE-A0807501A

PATIENT
  Age: 60 Year
  Sex: Male
  Weight: 93.2 kg

DRUGS (1)
  1. AVANDIA [Suspect]
     Indication: TYPE 2 DIABETES MELLITUS
     Dosage: 8MG PER DAY
     Route: 048
     Dates: start: 200104, end: 200605

REACTIONS (3)
  - Cerebrovascular accident [Not Recovered/Not Resolved]
  - Speech disorder [Unknown]
  - Cardiac disorder [Unknown]
